FAERS Safety Report 8457279-9 (Version None)
Quarter: 2012Q2

REPORT INFORMATION
  Report Type: 
  Country: None (occurrence: None)
  Receive Date: 20120621
  Receipt Date: 20120614
  Transmission Date: 20120825
  Serious: Yes (Hospitalization)
  Sender: FDA-Public Use
  Company Number: US-BAXTER-2012BAX008949

PATIENT
  Sex: Female
  Weight: 71.5 kg

DRUGS (3)
  1. CYCLOPHOSPHAMIDE [Suspect]
     Route: 042
     Dates: start: 20111225
  2. RITUXIMAB [Suspect]
     Route: 042
     Dates: start: 20111225
  3. FLUDARABINE PHOSPHATE [Suspect]
     Route: 042
     Dates: start: 20111225

REACTIONS (1)
  - PNEUMONIA [None]
